FAERS Safety Report 9508761 (Version 1)
Quarter: 2013Q3

REPORT INFORMATION
  Report Type: Spontaneous
  Country: US (occurrence: US)
  Receive Date: 20130909
  Receipt Date: 20130909
  Transmission Date: 20140515
  Serious: No
  Sender: FDA-Public Use
  Company Number: US-BRISTOL-MYERS SQUIBB COMPANY-19114438

PATIENT
  Age: 31 Year
  Sex: Female
  Weight: 75.73 kg

DRUGS (3)
  1. ABILIFY [Suspect]
     Indication: ANXIETY
  2. ABILIFY [Suspect]
     Indication: DEPRESSION
  3. CELEXA [Suspect]

REACTIONS (5)
  - Pregnancy [Unknown]
  - Decreased appetite [Unknown]
  - Insomnia [Unknown]
  - Somnolence [Unknown]
  - Abnormal behaviour [Unknown]
